FAERS Safety Report 6817347-1 (Version None)
Quarter: 2010Q2

REPORT INFORMATION
  Report Type: 
  Country: None (occurrence: None)
  Receive Date: 20100630
  Receipt Date: 20100617
  Transmission Date: 20101027
  Serious: Yes (Other)
  Sender: FDA-Public Use
  Company Number: TRP_07047_2010

PATIENT
  Age: 57 Year
  Sex: Male

DRUGS (2)
  1. RIBAVIRIN [Suspect]
     Indication: HEPATITIS C
     Dosage: 1000 MG DAILY
  2. PEGYLATED INTERFERON [Suspect]
     Indication: HEPATITIS C
     Dosage: 100 UG 1X WEEK

REACTIONS (4)
  - ALOPECIA AREATA [None]
  - ALOPECIA UNIVERSALIS [None]
  - ANAEMIA [None]
  - ANTI-THYROID ANTIBODY POSITIVE [None]
